FAERS Safety Report 8293566 (Version 10)
Quarter: 2013Q2

REPORT INFORMATION
  Report Type: Report from Study
  Country: DE (occurrence: DE)
  Receive Date: 20111215
  Receipt Date: 20130501
  Transmission Date: 20140414
  Serious: Yes (Other)
  Sender: FDA-Public Use
  Company Number: DE-ROCHE-1010769

PATIENT
  Age: 65 Year
  Sex: Female
  Weight: 51.5 kg

DRUGS (14)
  1. TRAMADOL [Concomitant]
     Dosage: 25 / DROP
     Route: 065
     Dates: start: 20110919
  2. NOVALGIN [Concomitant]
     Dosage: 90 DROPS DAILY
     Route: 065
     Dates: start: 20110725
  3. NOVALGIN [Concomitant]
     Dosage: 30/DROP
     Route: 065
     Dates: start: 20110919
  4. TRAMAL LONG [Concomitant]
     Dosage: UNKNOWN
     Route: 065
     Dates: start: 20110725
  5. GABAPENTIN [Concomitant]
     Dosage: 2/TBL
     Route: 065
     Dates: start: 20111010, end: 20111102
  6. ACTIVELLE [Concomitant]
     Route: 065
     Dates: start: 2011
  7. JODID [Concomitant]
     Route: 065
     Dates: start: 2011
  8. VOLTAREN [Concomitant]
     Route: 065
     Dates: start: 2011
  9. IBUPROFEN [Concomitant]
     Route: 065
     Dates: start: 20110816
  10. SPIRIVA [Concomitant]
     Route: 065
     Dates: start: 20110816
  11. MORPHINE [Concomitant]
     Route: 065
     Dates: start: 20110816
  12. VEMURAFENIB [Suspect]
     Indication: METASTATIC MALIGNANT MELANOMA
     Route: 048
     Dates: start: 20110725
  13. VEMURAFENIB [Suspect]
     Dosage: LAST DOSE PRIOR TO SAE:31/OCT/2011
     Route: 048
     Dates: start: 20111017, end: 20111114
  14. TRAMADOL [Concomitant]
     Dosage: 75 DROPS DAILY
     Route: 065
     Dates: start: 20110725

REACTIONS (1)
  - Malignant melanoma [Recovered/Resolved]
